FAERS Safety Report 4996520-1 (Version None)
Quarter: 2006Q2

REPORT INFORMATION
  Report Type: 
  Country: None (occurrence: None)
  Receive Date: 20060509
  Receipt Date: 20060503
  Transmission Date: 20061013
  Serious: Yes (Other)
  Sender: FDA-Public Use
  Company Number: PHEH2006US05869

PATIENT
  Age: 13 Year
  Sex: Male

DRUGS (4)
  1. FOCALIN XR [Suspect]
     Indication: ATTENTION DEFICIT/HYPERACTIVITY DISORDER
     Dosage: 20 MG, QD
     Route: 048
     Dates: start: 20051201
  2. CLONIDINE [Concomitant]
     Indication: SLEEP DISORDER
     Dosage: 0.2 MG, QHS
     Route: 048
     Dates: start: 20030101
  3. NOVOLOG [Concomitant]
     Indication: DIABETES MELLITUS INSULIN-DEPENDENT
  4. ZITHROMAX [Suspect]
     Indication: SINUSITIS

REACTIONS (7)
  - ABDOMINAL PAIN UPPER [None]
  - CHEST PAIN [None]
  - CIRCULATORY COLLAPSE [None]
  - DRUG INTERACTION [None]
  - HEART RATE INCREASED [None]
  - LOSS OF CONSCIOUSNESS [None]
  - SINUSITIS [None]
